FAERS Safety Report 9712576 (Version 1)
Quarter: 2013Q4

REPORT INFORMATION
  Report Type: Spontaneous
  Country: US (occurrence: US)
  Receive Date: 20131126
  Receipt Date: 20131126
  Transmission Date: 20140711
  Serious: No
  Sender: FDA-Public Use
  Company Number: US-BRISTOL-MYERS SQUIBB COMPANY-18893347

PATIENT
  Age: 75 Year
  Sex: Female
  Weight: 73.47 kg

DRUGS (4)
  1. BYDUREON [Suspect]
     Indication: TYPE 2 DIABETES MELLITUS
     Dosage: PRESCRIPTION #:  130323991803?DURATION OF THERAPY: OVER FOUR MONTHS AGO
     Route: 058
     Dates: start: 201301
  2. LOVAZA [Concomitant]
  3. WELCHOL [Concomitant]
  4. METFORMIN [Concomitant]

REACTIONS (1)
  - Injection site swelling [Recovering/Resolving]
